FAERS Safety Report 13609523 (Version 5)
Quarter: 2017Q3

REPORT INFORMATION
  Report Type: Spontaneous
  Country: KR (occurrence: KR)
  Receive Date: 20170602
  Receipt Date: 20170825
  Transmission Date: 20171127
  Serious: Yes (Hospitalization, Other)
  Sender: FDA-Public Use
  Company Number: KR-009507513-1705KOR015063

PATIENT
  Age: 68 Year
  Sex: Male

DRUGS (22)
  1. DEXAMETHASONE SODIUM PHOSPHATE. [Concomitant]
     Active Substance: DEXAMETHASONE SODIUM PHOSPHATE
     Indication: PREMEDICATION
     Dosage: 12 MG, ONCE; STRENGTH: 5MG/ML
     Route: 042
     Dates: start: 20170207, end: 20170207
  2. DEXAMETHASONE SODIUM PHOSPHATE. [Concomitant]
     Active Substance: DEXAMETHASONE SODIUM PHOSPHATE
     Dosage: 8 MG, ONCE; STRENGTH: 5MG/ML
     Route: 042
     Dates: start: 20170210, end: 20170210
  3. VASTINAN MR [Concomitant]
     Indication: ANGINA PECTORIS
     Dosage: 1 TABLET, BID
     Route: 048
     Dates: start: 20170201
  4. LASTET [Concomitant]
     Active Substance: ETOPOSIDE
     Indication: SMALL CELL LUNG CANCER
     Dosage: 184 MG, DAILY; STRENGTH: 100MG/5ML, CYCLE 1
     Route: 042
     Dates: start: 20170207, end: 20170209
  5. DEXAMETHASONE SODIUM PHOSPHATE. [Concomitant]
     Active Substance: DEXAMETHASONE SODIUM PHOSPHATE
     Dosage: 8 MG, BID; STRENGTH: 5MG/ML
     Route: 042
     Dates: start: 20170209, end: 20170209
  6. LIPITOR [Concomitant]
     Active Substance: ATORVASTATIN CALCIUM
     Indication: HYPERLIPIDAEMIA
     Dosage: 1 TABLET, QD
     Route: 048
  7. TANAMIN [Concomitant]
     Indication: ANGINA PECTORIS
     Dosage: 1 TABLET, BID
     Route: 048
     Dates: start: 20170201, end: 20170213
  8. EMEND (FOSAPREPITANT DIMEGLUMINE) [Suspect]
     Active Substance: FOSAPREPITANT DIMEGLUMINE
     Indication: PROPHYLAXIS OF NAUSEA AND VOMITING
     Dosage: 150 MG, ONCE
     Route: 042
     Dates: start: 20170207, end: 20170207
  9. ASPIRIN. [Concomitant]
     Active Substance: ASPIRIN
     Indication: ANGINA PECTORIS
     Dosage: 1 CAPSULE, QD
     Route: 048
     Dates: start: 20170208
  10. APROVEL [Concomitant]
     Active Substance: IRBESARTAN
     Indication: HYPERTENSION
     Dosage: 1 TABLET, QD
     Route: 048
     Dates: start: 20170201
  11. ALOXI [Concomitant]
     Active Substance: PALONOSETRON HYDROCHLORIDE
     Indication: PREMEDICATION
     Dosage: 0.25 MG, ONCE
     Route: 042
     Dates: start: 20170207, end: 20170207
  12. TYLENOL EXTENDED RELIEF CAPLETS [Concomitant]
     Active Substance: ACETAMINOPHEN
     Indication: PROPHYLAXIS
  13. ISOKET RETARD [Concomitant]
     Indication: ANGINA PECTORIS
     Dosage: 1 TABLET, BID
     Route: 048
     Dates: start: 20170201
  14. MACPERAN [Concomitant]
     Active Substance: METOCLOPRAMIDE HYDROCHLORIDE
     Indication: PROPHYLAXIS OF NAUSEA AND VOMITING
     Dosage: 1 TABLET, TID
     Route: 048
     Dates: start: 20170208, end: 20170213
  15. NEBILET [Concomitant]
     Active Substance: NEBIVOLOL
     Indication: HYPERTENSION
     Dosage: 2.5 MG, QD
     Route: 048
     Dates: start: 20170201
  16. CISPLAN [Concomitant]
     Active Substance: CISPLATIN
     Indication: SMALL CELL LUNG CANCER
     Dosage: 138 MG, ONCE; STRENGTH: 50MG/100ML, CYCLE 1
     Route: 042
     Dates: start: 20170207, end: 20170207
  17. TYLENOL EXTENDED RELIEF CAPLETS [Concomitant]
     Active Substance: ACETAMINOPHEN
     Indication: PAIN PROPHYLAXIS
     Dosage: 1 TABLET, QD
     Route: 048
     Dates: start: 20170210, end: 20170221
  18. ACTIFED (PSEUDOEPHEDRINE HYDROCHLORIDE (+) TRIPROLIDINE HYDROCHLORIDE) [Concomitant]
     Indication: NOCTURNAL DYSPNOEA
     Dosage: 1 TABLET, TID
     Route: 048
     Dates: start: 20170203, end: 20170206
  19. RESPILENE (ZIPEPROL HYDROCHLORIDE) [Concomitant]
     Indication: NOCTURNAL DYSPNOEA
     Dosage: 1 TABLET (37.5MG), TID
     Route: 048
     Dates: start: 20170203, end: 20170212
  20. DEXAMETHASONE SODIUM PHOSPHATE. [Concomitant]
     Active Substance: DEXAMETHASONE SODIUM PHOSPHATE
     Indication: PROPHYLAXIS
     Dosage: 8 MG, ONCE; STRENGTH: 5MG/ML
     Route: 042
     Dates: start: 20170208, end: 20170208
  21. DEXAMETHASONE. [Concomitant]
     Active Substance: DEXAMETHASONE
     Indication: PROPHYLAXIS
     Dosage: 8 MG, ONCE
     Route: 048
     Dates: start: 20170210, end: 20170210
  22. PLETAAL [Concomitant]
     Active Substance: CILOSTAZOL
     Indication: ANGINA PECTORIS
     Dosage: 1 TABLET, BID
     Route: 048
     Dates: start: 20170209

REACTIONS (4)
  - Febrile neutropenia [Recovered/Resolved]
  - Hypophagia [Not Recovered/Not Resolved]
  - Computerised tomogram thorax abnormal [Not Recovered/Not Resolved]
  - Platelet count decreased [Not Recovered/Not Resolved]

NARRATIVE: CASE EVENT DATE: 20170213
